FAERS Safety Report 8346267-9 (Version None)
Quarter: 2012Q2

REPORT INFORMATION
  Report Type: 
  Country: None (occurrence: None)
  Receive Date: 20120509
  Receipt Date: 20120501
  Transmission Date: 20120825
  Serious: Yes (Other)
  Sender: FDA-Public Use
  Company Number: US-ASTELLAS-2011US004834

PATIENT
  Sex: Female

DRUGS (2)
  1. ERLOTINIB HYDROCHLORIDE [Suspect]
     Indication: NON-SMALL CELL LUNG CANCER
     Dosage: 150 MG, UID/QD
     Route: 048
     Dates: start: 20110722
  2. ERLOTINIB HYDROCHLORIDE [Suspect]
     Dosage: 100 MG, UID/QD
     Route: 048

REACTIONS (13)
  - VITREOUS FLOATERS [None]
  - RASH [None]
  - EYE INFECTION [None]
  - VISUAL ACUITY REDUCED [None]
  - INCONTINENCE [None]
  - ARTHRALGIA [None]
  - BONE PAIN [None]
  - SENSORY DISTURBANCE [None]
  - DECREASED APPETITE [None]
  - PAIN IN EXTREMITY [None]
  - DRY SKIN [None]
  - EYE INFLAMMATION [None]
  - MUCOSAL INFLAMMATION [None]
